FAERS Safety Report 9110104 (Version 1)
Quarter: 2013Q1

REPORT INFORMATION
  Report Type: Spontaneous
  Country: US (occurrence: US)
  Receive Date: 20130222
  Receipt Date: 20130222
  Transmission Date: 20140127
  Serious: Yes (Disabling, Other)
  Sender: FDA-Public Use
  Company Number: US-BAYER-2013-018459

PATIENT
  Age: 53 Year
  Sex: Male
  Weight: 124.26 kg

DRUGS (7)
  1. ALEVE CAPLET/TABLET,MIDOL EXTENDED RELIEF CAPLET [Suspect]
     Indication: BURNING SENSATION
     Dosage: 200 MG, UNK
  2. LYRICA [Suspect]
     Indication: BURNING SENSATION
     Dosage: 50 MG, UNK
     Dates: start: 20070627, end: 20071015
  3. UNSPECIFIED MEDICATIONS [Suspect]
  4. NEURONTIN [Concomitant]
     Indication: NEUROPATHY PERIPHERAL
     Dosage: 100 MG, UNK
     Dates: start: 20070616, end: 20070616
  5. METFORMIN [Concomitant]
     Indication: DIABETES MELLITUS
     Dosage: 1000 MG, BID
  6. NOVOLOG [Concomitant]
     Indication: DIABETES MELLITUS
     Dosage: 65 IU, BID
  7. LANTUS [Concomitant]
     Indication: DIABETES MELLITUS
     Dosage: 65 IU, BID

REACTIONS (7)
  - Feeling abnormal [Unknown]
  - Memory impairment [Unknown]
  - Lacunar infarction [Unknown]
  - Head discomfort [Unknown]
  - Eyelid ptosis [Unknown]
  - Vision blurred [Unknown]
  - Drug ineffective [None]
